FAERS Safety Report 19321630 (Version 10)
Quarter: 2022Q4

REPORT INFORMATION
  Report Type: Spontaneous
  Country: RU (occurrence: RU)
  Receive Date: 20210527
  Receipt Date: 20221212
  Transmission Date: 20230112
  Serious: Yes (Life-Threatening, Other)
  Sender: FDA-Public Use
  Company Number: RU-BIOGEN-2021BI01012851

PATIENT
  Sex: Female
  Weight: 14 kg

DRUGS (12)
  1. SPINRAZA [Suspect]
     Active Substance: NUSINERSEN
     Indication: Spinal muscular atrophy
     Dosage: 1ST ADMINISTRATION
     Route: 050
     Dates: start: 20210429, end: 20210429
  2. SPINRAZA [Suspect]
     Active Substance: NUSINERSEN
     Dosage: 2ND ADMINISTRATION
     Route: 050
     Dates: start: 20210513, end: 20210513
  3. SPINRAZA [Suspect]
     Active Substance: NUSINERSEN
     Dosage: 3RD ADMINISTRATION
     Route: 050
     Dates: start: 20210705
  4. SPINRAZA [Suspect]
     Active Substance: NUSINERSEN
     Dosage: 4TH ADMINISTRATION
     Route: 050
     Dates: start: 20210720
  5. SEVOFLURANE [Suspect]
     Active Substance: SEVOFLURANE
     Indication: Anaesthesia procedure
     Dosage: 6-8 VOL% WAS USED, FLOW 02 6 L/MIN
     Route: 050
     Dates: start: 20210429, end: 20210429
  6. SEVOFLURANE [Suspect]
     Active Substance: SEVOFLURANE
     Dosage: 6-8 VOL% WAS USED
     Route: 050
     Dates: start: 20210513, end: 20210513
  7. SEVOFLURANE [Suspect]
     Active Substance: SEVOFLURANE
     Dosage: 6-8 VOL% WAS USED
     Route: 050
     Dates: start: 20210705, end: 20210705
  8. SEVOFLURANE [Suspect]
     Active Substance: SEVOFLURANE
     Dosage: 6-8 VOL% WAS USED
     Route: 050
     Dates: start: 20210720, end: 20210720
  9. SODIUM CHLORIDE [Concomitant]
     Active Substance: SODIUM CHLORIDE
     Indication: Prophylaxis
     Route: 050
     Dates: start: 20210429, end: 2021
  10. SODIUM CHLORIDE [Concomitant]
     Active Substance: SODIUM CHLORIDE
     Route: 050
     Dates: start: 20210513, end: 20210517
  11. DEXTROSE [Concomitant]
     Active Substance: DEXTROSE
     Indication: Prophylaxis
     Route: 050
     Dates: start: 20210429, end: 2021
  12. DEXTROSE [Concomitant]
     Active Substance: DEXTROSE
     Route: 050
     Dates: start: 20210513, end: 20210517

REACTIONS (8)
  - Body temperature increased [Recovered/Resolved]
  - Hyperthermia [Recovered/Resolved]
  - Product quality issue [Recovered/Resolved]
  - Confusional state [Recovered/Resolved]
  - Lethargy [Recovered/Resolved]
  - Bacterial test positive [Unknown]
  - Product storage error [Unknown]
  - Chills [Unknown]

NARRATIVE: CASE EVENT DATE: 20210101
